FAERS Safety Report 20190437 (Version 1)
Quarter: 2021Q4

REPORT INFORMATION
  Report Type: Report from Study
  Country: US (occurrence: US)
  Receive Date: 20211215
  Receipt Date: 20211215
  Transmission Date: 20220303
  Serious: Yes (Life-Threatening, Hospitalization)
  Sender: FDA-Public Use
  Company Number: US-CELGENE-USA-20200904555

PATIENT
  Age: 77 Year
  Sex: Female
  Weight: 73.7 kg

DRUGS (5)
  1. ABRAXANE [Suspect]
     Active Substance: PACLITAXEL
     Indication: Pancreatic carcinoma
     Dosage: 125 MILLIGRAM/SQ. METER
     Route: 041
     Dates: start: 20200625
  2. ABRAXANE [Suspect]
     Active Substance: PACLITAXEL
     Dosage: 125 MICROGRAM/SQ. METER
     Route: 041
     Dates: start: 20200820, end: 20200902
  3. ABRAXANE [Suspect]
     Active Substance: PACLITAXEL
     Dosage: 125 MICROGRAM/SQ. METER
     Route: 041
     Dates: start: 20200915
  4. GEMCITABINE [Suspect]
     Active Substance: GEMCITABINE
     Indication: Pancreatic carcinoma
     Dosage: 1000 MILLIGRAM/SQ. METER
     Route: 065
     Dates: start: 20200625
  5. GEMCITABINE [Suspect]
     Active Substance: GEMCITABINE
     Dosage: 1000 MICROGRAM/SQ. METER
     Route: 065
     Dates: start: 20200820, end: 20200902

REACTIONS (1)
  - Pneumonitis [Not Recovered/Not Resolved]

NARRATIVE: CASE EVENT DATE: 20200915
